FAERS Safety Report 23425055 (Version 2)
Quarter: 2024Q2

REPORT INFORMATION
  Report Type: Report from Study
  Country: CA (occurrence: CA)
  Receive Date: 20240121
  Receipt Date: 20240405
  Transmission Date: 20240716
  Serious: No
  Sender: FDA-Public Use
  Company Number: CA-ABBVIE-5599072

PATIENT
  Sex: Female

DRUGS (1)
  1. BOTOX [Suspect]
     Active Substance: ONABOTULINUMTOXINA
     Indication: Blepharospasm
     Dosage: TIME INTERVAL: AS NECESSARY: FREQUENCY: EVERY 12 WEEKS
     Route: 030
     Dates: start: 20231108, end: 20231108

REACTIONS (2)
  - Eye disorder [Unknown]
  - Drug ineffective [Not Recovered/Not Resolved]
